FAERS Safety Report 4960516-6 (Version None)
Quarter: 2006Q2

REPORT INFORMATION
  Report Type: 
  Country: None (occurrence: None)
  Receive Date: 20060403
  Receipt Date: 20060321
  Transmission Date: 20061013
  Serious: Yes (Hospitalization, Other)
  Sender: FDA-Public Use
  Company Number: US-JNJFOC-20051200854

PATIENT
  Sex: Female
  Weight: 71.22 kg

DRUGS (9)
  1. RISPERDAL [Suspect]
     Indication: SCHIZOPHRENIA
     Route: 048
  2. RISPERDAL [Suspect]
     Indication: ALCOHOLIC PSYCHOSIS
     Route: 048
  3. DURAGESIC-100 [Concomitant]
     Indication: PAIN
  4. DILAUDID [Concomitant]
     Indication: PAIN
     Route: 048
  5. XANAX [Concomitant]
  6. ZESTRIL [Concomitant]
  7. TRAZODONE HCL [Concomitant]
  8. CELEXA [Concomitant]
  9. VISTARIL [Concomitant]

REACTIONS (13)
  - ANAL FISSURE [None]
  - ASTHMA [None]
  - CHOLECYSTITIS ACUTE [None]
  - DRUG WITHDRAWAL SYNDROME [None]
  - GASTRITIS [None]
  - HEPATIC NEOPLASM MALIGNANT [None]
  - HEPATIC STEATOSIS [None]
  - PANCREATITIS [None]
  - PHARYNGOLARYNGEAL PAIN [None]
  - PNEUMONIA [None]
  - SPLENIC ARTERY ANEURYSM [None]
  - URINARY TRACT INFECTION [None]
  - WEIGHT INCREASED [None]
